FAERS Safety Report 17391459 (Version 2)
Quarter: 2020Q2

REPORT INFORMATION
  Report Type: Spontaneous
  Country: PT (occurrence: PT)
  Receive Date: 20200207
  Receipt Date: 20200417
  Transmission Date: 20200713
  Serious: Yes (Death, Hospitalization, Other)
  Sender: FDA-Public Use
  Company Number: PT-AMGEN-PRTSP2020020202

PATIENT
  Age: 62 Year
  Sex: Female

DRUGS (9)
  1. SEVELAMER [Concomitant]
     Active Substance: SEVELAMER
  2. SODIUM THIOSULFATE [Concomitant]
     Active Substance: SODIUM THIOSULFATE
  3. CINACALCET HCL [Suspect]
     Active Substance: CINACALCET HYDROCHLORIDE
     Indication: END STAGE RENAL DISEASE
     Dosage: UNK
     Route: 065
     Dates: start: 20160811
  4. ENOXAPARIN [Concomitant]
     Active Substance: ENOXAPARIN
  5. PREGABALIN. [Concomitant]
     Active Substance: PREGABALIN
  6. VANCOMYCIN [Concomitant]
     Active Substance: VANCOMYCIN
  7. WARFARIN [Concomitant]
     Active Substance: WARFARIN
  8. CEFTAZIDIME. [Concomitant]
     Active Substance: CEFTAZIDIME
  9. AMIODARONE [Concomitant]
     Active Substance: AMIODARONE

REACTIONS (4)
  - Hypocalcaemia [Unknown]
  - Infected skin ulcer [Unknown]
  - Cerebrovascular accident [Fatal]
  - Calciphylaxis [Unknown]
